FAERS Safety Report 8680057 (Version 3)
Quarter: 2014Q4

REPORT INFORMATION
  Report Type: Spontaneous
  Country: US (occurrence: US)
  Receive Date: 20120724
  Receipt Date: 20141119
  Transmission Date: 20150529
  Serious: Yes (Hospitalization)
  Sender: FDA-Public Use
  Company Number: US-ROCHE-1088165

PATIENT
  Age: 65 Year
  Sex: Female
  Weight: 82.17 kg

DRUGS (10)
  1. XOLAIR [Suspect]
     Active Substance: OMALIZUMAB
     Indication: ASTHMA
     Route: 058
     Dates: start: 20120705, end: 20120705
  2. AZELASTINE [Concomitant]
     Active Substance: AZELASTINE
  3. DIOVAN [Concomitant]
     Active Substance: VALSARTAN
  4. ALBUTEROL. [Concomitant]
     Active Substance: ALBUTEROL
  5. QNASL [Concomitant]
     Active Substance: BECLOMETHASONE DIPROPIONATE
  6. CARISOPRODOL. [Concomitant]
     Active Substance: CARISOPRODOL
  7. XOPENEX [Concomitant]
     Active Substance: LEVALBUTEROL HYDROCHLORIDE
  8. SYMBICORT [Concomitant]
     Active Substance: BUDESONIDE\FORMOTEROL FUMARATE DIHYDRATE
  9. OXYCODONE [Concomitant]
     Active Substance: OXYCODONE
  10. METROPOLOL COMP [Concomitant]

REACTIONS (5)
  - Wheezing [Recovered/Resolved]
  - Anaphylactic reaction [Recovered/Resolved]
  - Paraesthesia oral [Recovered/Resolved]
  - Head discomfort [Recovered/Resolved]
  - Throat irritation [Recovered/Resolved]

NARRATIVE: CASE EVENT DATE: 20120705
